FAERS Safety Report 15262311 (Version 1)
Quarter: 2018Q3

REPORT INFORMATION
  Report Type: Spontaneous
  Country: ES (occurrence: ES)
  Receive Date: 20180809
  Receipt Date: 20180809
  Transmission Date: 20181010
  Serious: Yes (Other)
  Sender: FDA-Public Use
  Company Number: PHHY2018ES067868

PATIENT
  Age: 53 Year
  Sex: Female

DRUGS (11)
  1. MYCOPHENOLATE MOFETIL. [Suspect]
     Active Substance: MYCOPHENOLATE MOFETIL
     Dosage: 1 G, Q12H
     Route: 065
  2. MYCOPHENOLATE MOFETIL. [Suspect]
     Active Substance: MYCOPHENOLATE MOFETIL
     Indication: IMMUNOSUPPRESSANT DRUG THERAPY
     Dosage: UNK
     Route: 065
  3. ADVAGRAF [Suspect]
     Active Substance: TACROLIMUS
     Dosage: 3 MG, QD (EVERY 24 HOURS)
     Route: 048
  4. BASILIXIMAB [Concomitant]
     Active Substance: BASILIXIMAB
     Indication: IMMUNOSUPPRESSANT DRUG THERAPY
     Dosage: UNK (UNIQUE DOSE)
     Route: 065
  5. ADVAGRAF [Suspect]
     Active Substance: TACROLIMUS
     Indication: IMMUNOSUPPRESSANT DRUG THERAPY
     Dosage: 4?6 MG, UNKNOWN FREQUENCY
     Route: 065
  6. PREDNISONE. [Suspect]
     Active Substance: PREDNISONE
     Indication: IMMUNOSUPPRESSANT DRUG THERAPY
     Dosage: UNK
     Route: 065
  7. PREDNISONE. [Suspect]
     Active Substance: PREDNISONE
     Dosage: 20 MG, QD(EVERY 24 HOURS)
     Route: 065
  8. ADVAGRAF [Suspect]
     Active Substance: TACROLIMUS
     Dosage: 4 MG, QD (EVERY 24 HOURS)
     Route: 065
  9. PREDNISONE. [Suspect]
     Active Substance: PREDNISONE
     Dosage: 15 MG, QD (EVERY 24 HOURS)
     Route: 065
  10. ADVAGRAF [Suspect]
     Active Substance: TACROLIMUS
     Dosage: 6 MG, UNK
     Route: 065
  11. ADVAGRAF [Suspect]
     Active Substance: TACROLIMUS
     Dosage: 7 MG, UNK
     Route: 065

REACTIONS (5)
  - Aspartate aminotransferase increased [Unknown]
  - Gamma-glutamyltransferase increased [Unknown]
  - Alanine aminotransferase increased [Unknown]
  - Immunosuppressant drug level decreased [Unknown]
  - Liver transplant rejection [Recovered/Resolved]
